FAERS Safety Report 18329173 (Version 1)
Quarter: 2020Q3

REPORT INFORMATION
  Report Type: Other
  Country: GR (occurrence: GR)
  Receive Date: 20200930
  Receipt Date: 20200930
  Transmission Date: 20201103
  Serious: Yes (Life-Threatening, Hospitalization, Other)
  Sender: FDA-Public Use
  Company Number: GR-ROCHE-2685933

PATIENT
  Age: 39 Year
  Sex: Female

DRUGS (1)
  1. ACTILYSE [Suspect]
     Active Substance: ALTEPLASE
     Indication: PULMONARY OEDEMA
     Dosage: BOLUS DOSE OF 5MG WAS ADMINISTERED THROUGH THE CATHETER WITHIN THE THROMBUS FREQUENCY: 1, FREQUENCY
     Route: 050

REACTIONS (5)
  - Procedural complication [Recovered/Resolved]
  - Haemorrhage [Recovered/Resolved]
  - Subcapsular renal haematoma [Unknown]
  - Arterial perforation [Recovered/Resolved]
  - Reperfusion injury [Recovered/Resolved]
